FAERS Safety Report 23430307 (Version 13)
Quarter: 2024Q4

REPORT INFORMATION
  Report Type: Report from Study
  Country: JP (occurrence: JP)
  Receive Date: 20240123
  Receipt Date: 20241005
  Transmission Date: 20250114
  Serious: Yes (Other)
  Sender: ABBVIE
  Company Number: JP-GSKJP-JP2024JPN006411AA

PATIENT
  Age: 55 Year
  Sex: Male
  Weight: 112 kg

DRUGS (17)
  1. BOTULINUM TOXIN TYPE A [Suspect]
     Active Substance: BOTULINUM TOXIN TYPE A
     Indication: Muscle spasms
     Route: 065
     Dates: start: 20180607, end: 20180607
  2. BOTULINUM TOXIN TYPE A [Suspect]
     Active Substance: BOTULINUM TOXIN TYPE A
     Indication: Muscle spasms
     Dosage: 500 IU SINGLE
     Route: 030
     Dates: start: 20231221, end: 20231221
  3. BOTULINUM TOXIN TYPE A [Suspect]
     Active Substance: BOTULINUM TOXIN TYPE A
     Indication: Muscle spasms
     Dosage: 500 IU, SINGLE
     Route: 030
     Dates: start: 20230921, end: 20230921
  4. BOTULINUM TOXIN TYPE A [Suspect]
     Active Substance: BOTULINUM TOXIN TYPE A
     Indication: Muscle spasms
     Dosage: 500 IU SINGLE
     Route: 030
     Dates: start: 20240321, end: 20240321
  5. BOTULINUM TOXIN TYPE A [Suspect]
     Active Substance: BOTULINUM TOXIN TYPE A
     Indication: Muscle spasms
     Dosage: 500 IU SINGLE
     Route: 030
     Dates: start: 20240620, end: 20240620
  6. FUROSEMIDE [Concomitant]
     Active Substance: FUROSEMIDE
     Indication: Product used for unknown indication
     Dosage: UNK
  7. AMLODIPINE BESYLATE [Concomitant]
     Active Substance: AMLODIPINE BESYLATE
     Indication: Product used for unknown indication
     Dosage: UNK
  8. BETAMETHASONE SODIUM PHOSPHATE [Concomitant]
     Active Substance: BETAMETHASONE SODIUM PHOSPHATE
     Indication: Product used for unknown indication
     Dosage: UNK
     Dates: start: 20240319
  9. BILASTINE [Concomitant]
     Active Substance: BILASTINE
     Indication: Seasonal allergy
     Dosage: UNK
     Dates: start: 20240419, end: 20240705
  10. LOXOPROFEN SODIUM [Concomitant]
     Active Substance: LOXOPROFEN SODIUM
     Indication: Periarthritis
     Dosage: UNK
  11. EPINASTINE HYDROCHLORIDE [Concomitant]
     Active Substance: EPINASTINE HYDROCHLORIDE
     Indication: Product used for unknown indication
     Dosage: UNK
     Dates: start: 20240319, end: 20240705
  12. FLUOROMETHOLONE [Concomitant]
     Active Substance: FLUOROMETHOLONE
     Indication: Dry eye
     Dosage: UNK
     Dates: start: 20231013
  13. AMOXICILLIN [Concomitant]
     Active Substance: AMOXICILLIN
     Indication: Product used for unknown indication
     Dosage: UNK
     Dates: start: 20240422
  14. OLMESARTAN MEDOXOMIL [Concomitant]
     Active Substance: OLMESARTAN MEDOXOMIL
     Indication: Product used for unknown indication
     Dosage: UNK
  15. DIQUAFOSOL TETRASODIUM [Concomitant]
     Active Substance: DIQUAFOSOL TETRASODIUM
     Indication: Dry eye
     Dosage: UNK
     Dates: start: 20231013
  16. AMOXICILLIN AND CLAVULANATE POTASSIUM [Concomitant]
     Active Substance: AMOXICILLIN\CLAVULANATE POTASSIUM
     Indication: Product used for unknown indication
     Dosage: UNK
     Dates: start: 20240422
  17. MOMETASONE FUROATE MONOHYDRATE [Concomitant]
     Active Substance: MOMETASONE FUROATE MONOHYDRATE
     Indication: Seasonal allergy
     Dosage: UNK
     Dates: start: 20240419, end: 20240705

REACTIONS (3)
  - Glaucoma [Not Recovered/Not Resolved]
  - Conjunctival haemorrhage [Recovered/Resolved]
  - Cellulitis [Recovered/Resolved]

NARRATIVE: CASE EVENT DATE: 20231013
